FAERS Safety Report 12039687 (Version 1)
Quarter: 2016Q1

REPORT INFORMATION
  Report Type: Spontaneous
  Country: US (occurrence: None)
  Receive Date: 20160205
  Receipt Date: 20160205
  Transmission Date: 20160526
  Serious: Yes (Hospitalization, Disabling)
  Sender: FDA-Public Use
  Company Number: None

PATIENT
  Age: 12 Year
  Sex: Female
  Weight: 54.6 kg

DRUGS (13)
  1. IRINOTECAN [Concomitant]
     Active Substance: IRINOTECAN
  2. TEMODAR [Concomitant]
     Active Substance: TEMOZOLOMIDE
  3. BACTRIM [Concomitant]
     Active Substance: SULFAMETHOXAZOLE\TRIMETHOPRIM
  4. ACETAMINOPHEN. [Concomitant]
     Active Substance: ACETAMINOPHEN
  5. GABAPENTIN. [Concomitant]
     Active Substance: GABAPENTIN
  6. HYDROMORPHONE [Concomitant]
     Active Substance: HYDROMORPHONE
  7. CEFIXIME. [Concomitant]
     Active Substance: CEFIXIME
  8. ATARAX [Concomitant]
     Active Substance: HYDROXYZINE\HYDROXYZINE HYDROCHLORIDE
  9. CETIRIZINE [Concomitant]
     Active Substance: CETIRIZINE HYDROCHLORIDE
  10. CEFTRIAXONE. [Concomitant]
     Active Substance: CEFTRIAXONE
  11. DINUTUXIMAB 3.5 MG/ML UNITED THERAPEUTICS [Suspect]
     Active Substance: DINUTUXIMAB
     Indication: NEUROBLASTOMA
     Dosage: 17.5MG/M2/ DOSE=27.3 MG QD INTRAVENOUS
     Route: 042
     Dates: end: 20160201
  12. ZANTAC [Concomitant]
     Active Substance: RANITIDINE HYDROCHLORIDE
  13. DIPHENHYDRAMINE. [Concomitant]
     Active Substance: DIPHENHYDRAMINE

REACTIONS (16)
  - Vomiting [None]
  - Diarrhoea [None]
  - Myelopathy [None]
  - Urinary retention [None]
  - Spinal cord disorder [None]
  - Anal incontinence [None]
  - Pain in extremity [None]
  - Paraesthesia [None]
  - Refusal of treatment by patient [None]
  - Pyrexia [None]
  - Myelitis [None]
  - Nausea [None]
  - Rash [None]
  - Movement disorder [None]
  - Hypoaesthesia [None]
  - Urinary incontinence [None]

NARRATIVE: CASE EVENT DATE: 20160203
